FAERS Safety Report 10271892 (Version 2)
Quarter: 2014Q3

REPORT INFORMATION
  Report Type: Report from Study
  Country: BR (occurrence: BR)
  Receive Date: 20140702
  Receipt Date: 20140806
  Transmission Date: 20150326
  Serious: Yes (Other)
  Sender: FDA-Public Use
  Company Number: PHHY2014BR079078

PATIENT
  Age: 66 Year
  Sex: Male
  Weight: 76 kg

DRUGS (4)
  1. ONBREZ [Suspect]
     Active Substance: INDACATEROL
     Indication: OFF LABEL USE
  2. ONBREZ [Suspect]
     Active Substance: INDACATEROL
     Indication: HYPERTENSION
     Dosage: 1 DF, DAILY (1 CAPSULE)
     Route: 055
  3. BENICAR [Concomitant]
     Active Substance: OLMESARTAN MEDOXOMIL
     Indication: BLOOD PRESSURE
     Dosage: 1 DF, QD (1 TABLET IN THE MORNING, 30 TABLETS)
  4. BENICAR [Concomitant]
     Active Substance: OLMESARTAN MEDOXOMIL
     Indication: DIABETES MELLITUS

REACTIONS (1)
  - Gastrointestinal carcinoma [Recovered/Resolved]

NARRATIVE: CASE EVENT DATE: 201401
